FAERS Safety Report 5516125-3 (Version None)
Quarter: 2007Q4

REPORT INFORMATION
  Report Type: 
  Country: None (occurrence: None)
  Receive Date: 20071114
  Receipt Date: 20061220
  Transmission Date: 20080405
  Serious: No
  Sender: FDA-Public Use
  Company Number: A0632073A

PATIENT
  Age: 3 Year

DRUGS (1)
  1. COMMIT [Suspect]
     Indication: ACCIDENTAL EXPOSURE
     Dates: start: 20061219, end: 20061219

REACTIONS (2)
  - ACCIDENTAL EXPOSURE [None]
  - VOMITING [None]
